FAERS Safety Report 13382161 (Version 1)
Quarter: 2017Q1

REPORT INFORMATION
  Report Type: Report from Study
  Country: JP (occurrence: JP)
  Receive Date: 20170329
  Receipt Date: 20170329
  Transmission Date: 20170429
  Serious: Yes (Disabling)
  Sender: FDA-Public Use
  Company Number: PHHY2011JP126649

PATIENT
  Age: 71 Year
  Sex: Female
  Weight: 41 kg

DRUGS (5)
  1. TYKERB [Suspect]
     Active Substance: LAPATINIB DITOSYLATE
     Indication: BREAST CANCER
     Dosage: 1250 MG
     Route: 048
     Dates: start: 20100703, end: 20101125
  2. XELODA [Suspect]
     Active Substance: CAPECITABINE
     Indication: PRODUCT USED FOR UNKNOWN INDICATION
     Dosage: 2400 MG
     Route: 048
     Dates: start: 20100703, end: 20100723
  3. XELODA [Suspect]
     Active Substance: CAPECITABINE
     Dosage: 1800 MG
     Route: 048
     Dates: start: 20100724, end: 20100806
  4. XELODA [Suspect]
     Active Substance: CAPECITABINE
     Dosage: 120 MG
     Route: 048
     Dates: start: 20101127, end: 20101230
  5. TYKERB [Suspect]
     Active Substance: LAPATINIB DITOSYLATE
     Dosage: 1000 MG
     Route: 048
     Dates: start: 20101127, end: 20110106

REACTIONS (4)
  - Peripheral swelling [Unknown]
  - Pain [Recovering/Resolving]
  - Skin fissures [Recovering/Resolving]
  - Skin exfoliation [Recovering/Resolving]

NARRATIVE: CASE EVENT DATE: 20100716
